FAERS Safety Report 12645586 (Version 1)
Quarter: 2016Q3

REPORT INFORMATION
  Report Type: Report from Study
  Country: GB (occurrence: GB)
  Receive Date: 20160811
  Receipt Date: 20160811
  Transmission Date: 20161109
  Serious: Yes (Other)
  Sender: FDA-Public Use
  Company Number: GB-JNJFOC-20160807453

PATIENT
  Age: 78 Year
  Sex: Female

DRUGS (2)
  1. RANIBIZUMAB [Concomitant]
     Active Substance: RANIBIZUMAB
     Route: 065
  2. RIVAROXABAN [Suspect]
     Active Substance: RIVAROXABAN
     Indication: PRODUCT USED FOR UNKNOWN INDICATION
     Route: 048

REACTIONS (2)
  - Retinal haemorrhage [Unknown]
  - Detachment of retinal pigment epithelium [Unknown]
